FAERS Safety Report 7892806-1 (Version None)
Quarter: 2011Q4

REPORT INFORMATION
  Report Type: 
  Country: None (occurrence: None)
  Receive Date: 20111104
  Receipt Date: 20111027
  Transmission Date: 20120403
  Serious: Yes (Hospitalization)
  Sender: FDA-Public Use
  Company Number: JP-B.I. PHARMACEUTICALS,INC./RIDGEFIELD-2011-BP-17114NB

PATIENT
  Sex: Male
  Weight: 75 kg

DRUGS (16)
  1. ALLOPURINOL [Concomitant]
     Dosage: 200 MG
     Route: 048
     Dates: start: 20030101
  2. BUFFERIN [Concomitant]
     Dosage: 81 MG
     Route: 048
     Dates: start: 19970101
  3. LANSOPRAZOLE [Concomitant]
     Dosage: 30 MG
     Route: 048
     Dates: start: 20090323
  4. NORVASC [Concomitant]
     Dosage: 2.5 MG
     Route: 048
     Dates: start: 20090428
  5. YOKU-KAN-SAN [Concomitant]
     Indication: PSYCHOMOTOR HYPERACTIVITY
     Dosage: 7.5 MG
     Route: 048
     Dates: start: 20110613, end: 20110830
  6. KETAS [Concomitant]
     Route: 048
     Dates: start: 19970101
  7. PRADAXA [Suspect]
     Indication: ATRIAL FIBRILLATION
     Dosage: 220 MG
     Route: 048
     Dates: start: 20110616, end: 20110621
  8. SIGMART [Concomitant]
     Dosage: 10 MG
     Route: 048
     Dates: start: 20030101
  9. DEPAS [Concomitant]
     Indication: INSOMNIA
     Dosage: 0.5 MG
     Route: 048
     Dates: start: 20030101
  10. LASIX [Concomitant]
     Indication: CARDIAC FAILURE
     Dosage: 40 MG
     Route: 048
     Dates: start: 19970101
  11. SERMION [Concomitant]
     Dosage: 10 MG
     Route: 048
     Dates: start: 19970101
  12. RHYTHMY [Concomitant]
     Indication: INSOMNIA
     Dosage: 2 MG
     Route: 048
     Dates: start: 20030101
  13. SELBEX [Concomitant]
     Route: 048
     Dates: start: 20030101
  14. ALDACTONE [Concomitant]
     Indication: CARDIAC FAILURE
     Dosage: 25 MG
     Route: 048
     Dates: start: 20090309
  15. LANIRAPID [Concomitant]
     Indication: HEART RATE IRREGULAR
     Dosage: 0.05 MG
     Route: 048
     Dates: start: 19970101, end: 20110624
  16. EPHEDRA TEAS [Concomitant]
     Dosage: 6 MG
     Route: 048
     Dates: start: 20090511, end: 20110101

REACTIONS (2)
  - BRADYCARDIA [None]
  - GASTROINTESTINAL DISORDER [None]
